FAERS Safety Report 18916072 (Version 1)
Quarter: 2021Q1

REPORT INFORMATION
  Report Type: Spontaneous
  Country: IT (occurrence: IT)
  Receive Date: 20210219
  Receipt Date: 20210219
  Transmission Date: 20210420
  Serious: Yes (Life-Threatening, Hospitalization)
  Sender: FDA-Public Use
  Company Number: IT-MYLANLABS-2021M1010729

PATIENT
  Age: 54 Year
  Sex: Male

DRUGS (3)
  1. EPINEPHRINE. [Suspect]
     Active Substance: EPINEPHRINE
     Indication: CARDIOPULMONARY FAILURE
     Dosage: 2 MILLIGRAM
     Route: 065
  2. ATROPINE. [Suspect]
     Active Substance: ATROPINE
     Indication: CARDIOPULMONARY FAILURE
     Dosage: UNK
     Route: 065
  3. EPINEPHRINE. [Suspect]
     Active Substance: EPINEPHRINE
     Indication: CARDIAC ARREST

REACTIONS (1)
  - Drug ineffective [Unknown]
